FAERS Safety Report 6003113-6 (Version None)
Quarter: 2008Q4

REPORT INFORMATION
  Report Type: 
  Country: None (occurrence: None)
  Receive Date: 20081215
  Receipt Date: 20081215
  Transmission Date: 20090506
  Serious: Yes (Hospitalization)
  Sender: FDA-Public Use
  Company Number: None

PATIENT
  Sex: Female
  Weight: 84 kg

DRUGS (1)
  1. CISPLATIN [Suspect]
     Dosage: 70 MG
     Dates: start: 20080922, end: 20080922

REACTIONS (4)
  - BACTERIA BLOOD IDENTIFIED [None]
  - BONE MARROW FAILURE [None]
  - FEBRILE NEUTROPENIA [None]
  - THROMBOCYTOPENIA [None]
